FAERS Safety Report 6707663-6 (Version None)
Quarter: 2010Q2

REPORT INFORMATION
  Report Type: 
  Country: None (occurrence: None)
  Receive Date: 20100503
  Receipt Date: 20090527
  Transmission Date: 20101027
  Serious: No
  Sender: FDA-Public Use
  Company Number: US-ASTRAZENECA-2009UW13444

PATIENT
  Age: 65 Year
  Sex: Female
  Weight: 57.2 kg

DRUGS (7)
  1. NEXIUM [Suspect]
     Route: 048
  2. FOSAMAX [Concomitant]
  3. METAMUCIL-2 [Concomitant]
  4. ECOTRIN [Concomitant]
  5. VITAMIN C [Concomitant]
  6. VITAMIN E [Concomitant]
  7. CALTRATE [Concomitant]

REACTIONS (1)
  - BLOOD CALCIUM DECREASED [None]
